FAERS Safety Report 7332400-4 (Version None)
Quarter: 2011Q1

REPORT INFORMATION
  Report Type: 
  Country: None (occurrence: None)
  Receive Date: 20110304
  Receipt Date: 20110222
  Transmission Date: 20110831
  Serious: Yes (Death)
  Sender: FDA-Public Use
  Company Number: B0703699A

PATIENT
  Sex: Female

DRUGS (2)
  1. CEFUROXIME [Suspect]
     Indication: LYME DISEASE
     Route: 065
  2. TELITHROMYCIN [Suspect]
     Indication: LYME DISEASE
     Route: 065

REACTIONS (3)
  - ABDOMINAL PAIN [None]
  - CLOSTRIDIAL INFECTION [None]
  - COLITIS [None]
